FAERS Safety Report 8337733-0 (Version None)
Quarter: 2012Q2

REPORT INFORMATION
  Report Type: 
  Country: None (occurrence: None)
  Receive Date: 20120504
  Receipt Date: 20120423
  Transmission Date: 20120825
  Serious: Yes (Other)
  Sender: FDA-Public Use
  Company Number: CO-JNJFOC-20120411338

PATIENT
  Age: 27 Year
  Sex: Female

DRUGS (2)
  1. RISPERDAL CONSTA [Suspect]
     Indication: BIPOLAR DISORDER
     Route: 030
     Dates: start: 20120101, end: 20120301
  2. AN UNKNOWN MEDICATION [Concomitant]
     Indication: CONTRACEPTION
     Route: 065

REACTIONS (1)
  - THROMBOSIS [None]
